FAERS Safety Report 24603315 (Version 1)
Quarter: 2024Q4

REPORT INFORMATION
  Report Type: Spontaneous
  Country: US (occurrence: US)
  Receive Date: 20241111
  Receipt Date: 20241111
  Transmission Date: 20250114
  Serious: Yes (Hospitalization)
  Sender: BIOVITRUM
  Company Number: US-BIOVITRUM-2024-US-014283

PATIENT
  Age: 67 Year
  Sex: Male

DRUGS (1)
  1. VONJO [Suspect]
     Active Substance: PACRITINIB
     Indication: Myelofibrosis
     Dosage: 4 TIMES DAILY
     Route: 048
     Dates: start: 20240917

REACTIONS (2)
  - Osteoarthritis [Not Recovered/Not Resolved]
  - Concomitant disease progression [Not Recovered/Not Resolved]
